FAERS Safety Report 11458834 (Version 1)
Quarter: 2015Q3

REPORT INFORMATION
  Report Type: Report from Study
  Country: JP (occurrence: JP)
  Receive Date: 20150904
  Receipt Date: 20150904
  Transmission Date: 20151125
  Serious: Yes (Death, Hospitalization)
  Sender: FDA-Public Use
  Company Number: JP-EISAI MEDICAL RESEARCH-EC-2015-005614

PATIENT
  Age: 97 Year
  Sex: Female

DRUGS (4)
  1. ARICEPT [Suspect]
     Active Substance: DONEPEZIL HYDROCHLORIDE
     Route: 048
     Dates: start: 20140302, end: 20141120
  2. ONEALFA [Concomitant]
     Active Substance: ALFACALCIDOL
  3. VOLTAREN [Concomitant]
     Active Substance: DICLOFENAC SODIUM
  4. ARICEPT [Suspect]
     Active Substance: DONEPEZIL HYDROCHLORIDE
     Indication: DEMENTIA ALZHEIMER^S TYPE
     Route: 048
     Dates: start: 20140217, end: 20140301

REACTIONS (2)
  - Death [Fatal]
  - Femur fracture [Recovered/Resolved]

NARRATIVE: CASE EVENT DATE: 20141112
